FAERS Safety Report 6062496-1 (Version None)
Quarter: 2009Q1

REPORT INFORMATION
  Report Type: 
  Country: None (occurrence: None)
  Receive Date: 20090203
  Receipt Date: 20090123
  Transmission Date: 20090719
  Serious: No
  Sender: FDA-Public Use
  Company Number: US-JNJFOC-20090106205

PATIENT
  Sex: Female
  Weight: 77.11 kg

DRUGS (12)
  1. FENTANYL TRANSDERMAL SYSTEM [Suspect]
     Route: 062
  2. FENTANYL TRANSDERMAL SYSTEM [Suspect]
     Dosage: FROM U/NOV/2008 TO 22/JAN/2009
     Route: 062
  3. FENTANYL TRANSDERMAL SYSTEM [Suspect]
     Dosage: 25 12.5 UG/HR FROM U/U/2008 TO U/NOV/2008
     Route: 062
  4. FENTANYL TRANSDERMAL SYSTEM [Suspect]
     Dosage: FROM U/U/2008 TO U/U/2008
     Route: 062
  5. FENTANYL TRANSDERMAL SYSTEM [Suspect]
     Indication: NERVE INJURY
     Dosage: FROM U/MAR/2008 TO U/U2008
     Route: 062
  6. PERCOCET [Concomitant]
     Indication: BREAKTHROUGH PAIN
     Dosage: 5/325 MG
  7. FLEXERIL [Concomitant]
     Dosage: 10 MG 2 TABLETS AT BED TIME
     Route: 048
  8. FLEXERIL [Concomitant]
     Indication: NERVE INJURY
     Route: 048
  9. TOPAMAX [Concomitant]
     Indication: PAIN
     Dosage: DAILY
     Route: 048
  10. NABUMETONE [Concomitant]
     Indication: NEURALGIA
     Route: 048
  11. WELLBUTRIN [Concomitant]
     Indication: MIGRAINE
     Route: 048
  12. ESGIC-PLUS [Concomitant]
     Indication: MIGRAINE
     Dosage: 50/300/40 MG EVERY 6 HOURS AS NEEDED
     Route: 048

REACTIONS (4)
  - DRUG EFFECT DECREASED [None]
  - FEAR OF DISEASE [None]
  - INCORRECT DRUG ADMINISTRATION DURATION [None]
  - PAIN [None]
